FAERS Safety Report 6521404-7 (Version None)
Quarter: 2009Q4

REPORT INFORMATION
  Report Type: 
  Country: None (occurrence: None)
  Receive Date: 20091214
  Receipt Date: 20090610
  Transmission Date: 20100525
  Serious: Yes (Other)
  Sender: FDA-Public Use
  Company Number: 637758

PATIENT
  Age: 44 Year
  Sex: Male
  Weight: 129.3 kg

DRUGS (6)
  1. PEGASYS [Suspect]
     Indication: HEPATITIS C
     Dosage: 180 UG 1 PER WEEK SUBCUTANEOUS
     Route: 058
     Dates: start: 20090518, end: 20090605
  2. RIBAVIRIN [Suspect]
     Indication: HEPATITIS C
     Dosage: 1200 MG DAILY ORAL
     Route: 048
     Dates: start: 20090518, end: 20090610
  3. OMEPRAZOLE [Concomitant]
  4. MILK OF MAGNESIA TAB [Concomitant]
  5. GOODY'S HEADACHE POWDER (ASPIRIN/CAFFEINE/PARACETAMOL) [Concomitant]
  6. FISH OIL (FATTY ACIDS NOS) [Concomitant]

REACTIONS (1)
  - NEUROPATHY PERIPHERAL [None]
